FAERS Safety Report 5825661-1 (Version None)
Quarter: 2008Q3

REPORT INFORMATION
  Report Type: 
  Country: None (occurrence: None)
  Receive Date: 20080722
  Receipt Date: 20080708
  Transmission Date: 20090109
  Serious: Yes (Other)
  Sender: FDA-Public Use
  Company Number: SP1200800316

PATIENT
  Age: 61 Year
  Sex: Female

DRUGS (7)
  1. AMITIZA [Suspect]
     Indication: CONSTIPATION
     Dosage: 24 MCG, BID, ORAL
     Route: 048
  2. TRIAMTERENE (TRIAMTERENE) [Concomitant]
  3. METFORMIN HCL [Concomitant]
  4. PAXIL (PAROXETIN HYDROCHLORIDE) [Concomitant]
  5. PREMPRO [Concomitant]
  6. SIMVASTATIN [Concomitant]
  7. NABUMETONE [Concomitant]

REACTIONS (3)
  - DRUG INEFFECTIVE [None]
  - DRUG TOLERANCE [None]
  - FAECALOMA [None]
